FAERS Safety Report 5553349-3 (Version None)
Quarter: 2007Q4

REPORT INFORMATION
  Report Type: 
  Country: None (occurrence: None)
  Receive Date: 20071210
  Receipt Date: 20071210
  Transmission Date: 20080405
  Serious: Yes (Hospitalization)
  Sender: FDA-Public Use
  Company Number: None

PATIENT
  Sex: Female
  Weight: 117.9352 kg

DRUGS (2)
  1. RAZADYNE [Suspect]
     Indication: SLEEP DISORDER
     Dosage: 30 TABLETS  8 MG ONCE A DAY PO AND 1 PILL EVERY OTHER DAY
     Route: 048
     Dates: start: 20060418, end: 20060422
  2. RAZADYNE [Suspect]
     Indication: SLEEP DISORDER
     Dosage: 30 TABLETS  8 MG ONCE A DAY PO AND 1 PILL EVERY OTHER DAY
     Route: 048
     Dates: start: 20061030, end: 20061125

REACTIONS (12)
  - CONFUSIONAL STATE [None]
  - DIZZINESS [None]
  - DRUG DISPENSING ERROR [None]
  - HEADACHE [None]
  - HOT FLUSH [None]
  - IMPAIRED WORK ABILITY [None]
  - MALAISE [None]
  - MEDICATION ERROR [None]
  - MOTOR DYSFUNCTION [None]
  - NAUSEA [None]
  - TREMOR [None]
  - WRONG DRUG ADMINISTERED [None]
